FAERS Safety Report 4865912-3 (Version None)
Quarter: 2005Q4

REPORT INFORMATION
  Report Type: 
  Country: None (occurrence: None)
  Receive Date: 20051226
  Receipt Date: 20051212
  Transmission Date: 20060501
  Serious: Yes (Hospitalization, Disabling)
  Sender: FDA-Public Use
  Company Number: JP-SP-2005-02777

PATIENT
  Age: 69 Year
  Sex: Male

DRUGS (3)
  1. IMMUCYST [Suspect]
     Indication: BLADDER CANCER RECURRENT
     Route: 043
     Dates: start: 20050909, end: 20051031
  2. LEVOFLOXACIN [Concomitant]
     Dates: start: 20050926, end: 20051121
  3. LACTOBACILLUS CASEI [Concomitant]
     Dates: start: 20050926

REACTIONS (4)
  - ARTHRALGIA [None]
  - CONJUNCTIVAL HYPERAEMIA [None]
  - HYPERSENSITIVITY [None]
  - REITER'S SYNDROME [None]
